FAERS Safety Report 5076246-9 (Version None)
Quarter: 2006Q3

REPORT INFORMATION
  Report Type: 
  Country: None (occurrence: None)
  Receive Date: 20060804
  Receipt Date: 20060728
  Transmission Date: 20061208
  Serious: Yes (Hospitalization)
  Sender: FDA-Public Use
  Company Number: 200613262GDS

PATIENT
  Age: 71 Year
  Sex: Female
  Weight: 58 kg

DRUGS (24)
  1. ASPIRIN [Suspect]
     Indication: CARDIAC FAILURE CONGESTIVE
     Dosage: 300 MG, TOTAL DAILY, ORAL
     Route: 048
     Dates: start: 20060309
  2. ASPIRIN [Suspect]
     Indication: HYPERTENSIVE HEART DISEASE
     Dosage: 300 MG, TOTAL DAILY, ORAL
     Route: 048
     Dates: start: 20060309
  3. ENOXAPARIN SODIUM [Suspect]
     Indication: PARAPLEGIA
     Dosage: 0.4 ML, TOTAL DAILY; SEE IMAGE
     Dates: start: 20060309, end: 20060603
  4. ENOXAPARIN SODIUM [Suspect]
     Indication: QUADRIPLEGIA
     Dosage: 0.4 ML, TOTAL DAILY; SEE IMAGE
     Dates: start: 20060309, end: 20060603
  5. ENOXAPARIN SODIUM [Suspect]
     Indication: PARAPLEGIA
     Dosage: 0.4 ML, TOTAL DAILY; SEE IMAGE
     Dates: start: 20060604, end: 20060619
  6. ENOXAPARIN SODIUM [Suspect]
     Indication: QUADRIPLEGIA
     Dosage: 0.4 ML, TOTAL DAILY; SEE IMAGE
     Dates: start: 20060604, end: 20060619
  7. RAMIPRIL [Concomitant]
  8. BELOC ZOK [Concomitant]
  9. DAFALGAN [Concomitant]
  10. DIAMICRON [Concomitant]
  11. PARAGOL [Concomitant]
  12. FENISTIL [Concomitant]
  13. FLATULEX [Concomitant]
  14. DOSPIR [Concomitant]
  15. CALCIUM SANDOZ [CALCIUM GLUCONATE] [Concomitant]
  16. LOCOID [Concomitant]
  17. MOTILIUM [Concomitant]
  18. NEXIUM [Concomitant]
  19. NORVASC [Concomitant]
  20. PADMA [HERBAL EXTRACT NOS] [Concomitant]
  21. TORSEMIDE [Concomitant]
  22. TRIATEC [Concomitant]
  23. BLUEBERRY [Concomitant]
  24. ESOMEPRAZOLE MAGNESIUM [Concomitant]

REACTIONS (6)
  - ANAEMIA [None]
  - EOSINOPHILIA [None]
  - MUSCLE DISORDER [None]
  - MUSCLE HAEMORRHAGE [None]
  - PRURITUS [None]
  - RASH MACULO-PAPULAR [None]
